FAERS Safety Report 6697627-3 (Version None)
Quarter: 2010Q2

REPORT INFORMATION
  Report Type: 
  Country: None (occurrence: None)
  Receive Date: 20100423
  Receipt Date: 20100414
  Transmission Date: 20101027
  Serious: Yes (Other)
  Sender: FDA-Public Use
  Company Number: 2009S1007849

PATIENT
  Age: 34 Year
  Sex: Male

DRUGS (8)
  1. PHOSPHOSODA FLAVOR NOT SPECIFIED [Suspect]
     Indication: COLONOSCOPY
     Dosage: 90 ML; TOTAL; PO
     Route: 048
     Dates: start: 20021119, end: 20021119
  2. PHOSPHOSODA FLAVOR NOT SPECIFIED [Suspect]
     Indication: ENDOSCOPY
     Dosage: 90 ML; TOTAL; PO
     Route: 048
     Dates: start: 20021119, end: 20021119
  3. INSULIN [Concomitant]
  4. ALTACE [Concomitant]
  5. LIPITOR [Concomitant]
  6. XANAX [Concomitant]
  7. LORTAB [Concomitant]
  8. HYDROCHLOROTHIAZIDE [Concomitant]

REACTIONS (5)
  - DIALYSIS [None]
  - DRUG TOXICITY [None]
  - KIDNEY TRANSPLANT REJECTION [None]
  - RENAL FAILURE CHRONIC [None]
  - RENAL TRANSPLANT [None]
